FAERS Safety Report 5927037-5 (Version None)
Quarter: 2008Q4

REPORT INFORMATION
  Report Type: 
  Country: None (occurrence: None)
  Receive Date: 20081022
  Receipt Date: 20081011
  Transmission Date: 20090506
  Serious: Yes (Other)
  Sender: FDA-Public Use
  Company Number: PHHY2008BR24520

PATIENT

DRUGS (1)
  1. ACLASTA [Suspect]
     Indication: OSTEOPOROSIS
     Dosage: 5 MG, ONCE/SINGLE
     Dates: start: 20081010

REACTIONS (12)
  - ASTHENIA [None]
  - BACK PAIN [None]
  - BONE PAIN [None]
  - DELIRIUM [None]
  - DIARRHOEA [None]
  - DYSPNOEA [None]
  - INFLUENZA [None]
  - MOVEMENT DISORDER [None]
  - OCULAR HYPERAEMIA [None]
  - PYREXIA [None]
  - RETCHING [None]
  - TREMOR [None]
